FAERS Safety Report 9177809 (Version 6)
Quarter: 2013Q3

REPORT INFORMATION
  Report Type: Spontaneous
  Country: US (occurrence: None)
  Receive Date: 20130319
  Receipt Date: 20130823
  Transmission Date: 20140515
  Serious: Yes (Other)
  Sender: FDA-Public Use
  Company Number: ADR-2012-00159

PATIENT
  Sex: Male

DRUGS (1)
  1. LIORESAL INTRATHECAL [Suspect]
     Indication: MUSCLE SPASTICITY
     Dosage: SEE B5

REACTIONS (17)
  - Muscular weakness [None]
  - Muscle tightness [None]
  - Foot deformity [None]
  - Muscle spasticity [None]
  - Device expulsion [None]
  - Incorrect dose administered [None]
  - Abasia [None]
  - Asthenia [None]
  - Back pain [None]
  - Crying [None]
  - Hypotonia [None]
  - Ill-defined disorder [None]
  - Device alarm issue [None]
  - Muscle spasms [None]
  - Nausea [None]
  - Dizziness [None]
  - Drug withdrawal syndrome [None]
